FAERS Safety Report 6964023-0 (Version None)
Quarter: 2010Q3

REPORT INFORMATION
  Report Type: 
  Country: None (occurrence: None)
  Receive Date: 20100902
  Receipt Date: 20100902
  Transmission Date: 20110219
  Serious: No
  Sender: FDA-Public Use
  Company Number: None

PATIENT
  Sex: Female
  Weight: 76.7 kg

DRUGS (1)
  1. INTRON A [Suspect]
     Dosage: 656 MU

REACTIONS (1)
  - LYMPH NODE PAIN [None]
